FAERS Safety Report 9503653 (Version 1)
Quarter: 2013Q3

REPORT INFORMATION
  Report Type: Spontaneous
  Country: US (occurrence: None)
  Receive Date: 20130905
  Receipt Date: 20130905
  Transmission Date: 20140515
  Serious: No
  Sender: FDA-Public Use
  Company Number: None

PATIENT
  Age: 51 None
  Sex: Female

DRUGS (1)
  1. NUCYNTA ER [Suspect]
     Indication: PAIN
     Route: 048
     Dates: start: 20130815, end: 20130911

REACTIONS (2)
  - Tinnitus [None]
  - Hearing impaired [None]
